FAERS Safety Report 10018013 (Version 1)
Quarter: 2014Q1

REPORT INFORMATION
  Report Type: Spontaneous
  Country: JP (occurrence: JP)
  Receive Date: 20140318
  Receipt Date: 20140318
  Transmission Date: 20141002
  Serious: Yes (Death)
  Sender: FDA-Public Use
  Company Number: JP-NOVOPROD-402634

PATIENT
  Age: 75 Year
  Sex: Male
  Weight: 44 kg

DRUGS (7)
  1. NOVOSEVEN HI [Suspect]
     Indication: ACQUIRED HAEMOPHILIA
     Dosage: 5 MG, QD
     Route: 042
     Dates: start: 20140304, end: 20140304
  2. NOVOSEVEN HI [Suspect]
     Dosage: 5 MG, BID (AT 2:00 AND AT 6:00 HRS)
     Route: 042
     Dates: start: 20140305, end: 20140305
  3. NOVOSEVEN HI [Suspect]
     Dosage: 5 MG, TID (3 TIMES EVERY FOUR HOURS)
     Route: 042
     Dates: start: 20140306, end: 20140306
  4. PREDONINE /00016201/ [Suspect]
     Indication: PRODUCT USED FOR UNKNOWN INDICATION
     Dosage: 30 MG, QD
     Route: 042
     Dates: start: 20140305, end: 20140306
  5. LANSOPRAZOLE [Concomitant]
     Dosage: 15 MG, QD
     Route: 048
     Dates: start: 20140305, end: 20140306
  6. FLUCONAZOLE [Concomitant]
     Indication: PRODUCT USED FOR UNKNOWN INDICATION
     Dosage: 100 MG, QD
     Route: 048
     Dates: start: 20140305, end: 20140306
  7. DOPAMINE HYDROCHLORIDE [Concomitant]
     Indication: PRODUCT USED FOR UNKNOWN INDICATION
     Dosage: 100 MG, QD
     Route: 042
     Dates: start: 20140304, end: 20140307

REACTIONS (1)
  - Shock haemorrhagic [Fatal]
